FAERS Safety Report 12182513 (Version 2)
Quarter: 2016Q1

REPORT INFORMATION
  Report Type: Report from Study
  Country: US (occurrence: US)
  Receive Date: 20160316
  Receipt Date: 20160321
  Transmission Date: 20160526
  Serious: Yes (Hospitalization, Other)
  Sender: FDA-Public Use
  Company Number: US-AMGEN-USASL2016018658

PATIENT
  Age: 61 Year
  Sex: Male

DRUGS (1)
  1. REPATHA [Suspect]
     Active Substance: EVOLOCUMAB
     Indication: TYPE IIA HYPERLIPIDAEMIA
     Dosage: 140 MG, Q2WK
     Route: 065
     Dates: start: 20151113

REACTIONS (5)
  - Splenectomy [Unknown]
  - Pancreatic leak [Unknown]
  - Pancreatic stent placement [Unknown]
  - Pancreatectomy [Unknown]
  - Pancreas infection [Unknown]

NARRATIVE: CASE EVENT DATE: 2016
